FAERS Safety Report 6162790-X (Version None)
Quarter: 2009Q2

REPORT INFORMATION
  Report Type: 
  Country: None (occurrence: None)
  Receive Date: 20090421
  Receipt Date: 20080718
  Transmission Date: 20091009
  Serious: No
  Sender: FDA-Public Use
  Company Number: US-ASTRAZENECA-2008UW14362

PATIENT
  Age: 78 Year
  Sex: Male
  Weight: 90.7 kg

DRUGS (6)
  1. TOPROL-XL [Suspect]
     Indication: HYPERTENSION
     Route: 048
     Dates: start: 20071101
  2. TOPROL-XL [Suspect]
     Dosage: 12.5 MG
     Route: 048
  3. PLAVIX [Concomitant]
  4. FLOMAX [Concomitant]
  5. SIMVASTATIN [Concomitant]
  6. DIOVAN [Concomitant]

REACTIONS (1)
  - RESPIRATORY DISORDER [None]
